FAERS Safety Report 8846803 (Version 1)
Quarter: 2012Q4

REPORT INFORMATION
  Report Type: 
  Country: BR (occurrence: BR)
  Receive Date: 20121018
  Receipt Date: 20121018
  Transmission Date: 20130627
  Serious: Yes (Hospitalization)
  Sender: FDA-Public Use
  Company Number: BR-BRISTOL-MYERS SQUIBB COMPANY-17035361

PATIENT
  Age: 55 Year
  Sex: Female
  Weight: 63 kg

DRUGS (6)
  1. ONGLYZA TABS 5 MG [Suspect]
     Indication: DIABETES MELLITUS
     Dosage: 1 tabs
     Route: 048
     Dates: start: 201112
  2. GLIFAGE [Suspect]
     Indication: DIABETES MELLITUS
  3. PURAN T4 [Concomitant]
  4. ESTROFEM [Concomitant]
  5. VALTRIAN [Concomitant]
  6. LIPLESS [Concomitant]

REACTIONS (4)
  - Bone disorder [Recovering/Resolving]
  - Oedema peripheral [Recovering/Resolving]
  - Weight decreased [Unknown]
  - Gastritis [Unknown]
